FAERS Safety Report 5740466-8 (Version None)
Quarter: 2008Q2

REPORT INFORMATION
  Report Type: 
  Country: None (occurrence: None)
  Receive Date: 20080516
  Receipt Date: 20080507
  Transmission Date: 20081010
  Serious: Yes (Hospitalization)
  Sender: FDA-Public Use
  Company Number: TR-ASTRAZENECA-2008AC01186

PATIENT
  Age: 45 Year
  Sex: Male

DRUGS (3)
  1. QUETIAPINE FUMARATE [Suspect]
     Indication: INSOMNIA
     Route: 048
  2. QUETIAPINE FUMARATE [Suspect]
     Route: 048
  3. LITHURIL [Concomitant]
     Indication: BIPOLAR DISORDER

REACTIONS (2)
  - DELIRIUM [None]
  - INCORRECT DOSE ADMINISTERED [None]
